FAERS Safety Report 5071276-5 (Version None)
Quarter: 2006Q3

REPORT INFORMATION
  Report Type: 
  Country: None (occurrence: None)
  Receive Date: 20060803
  Receipt Date: 20060803
  Transmission Date: 20061208
  Serious: No
  Sender: FDA-Public Use
  Company Number: None

PATIENT
  Age: 58 Year
  Sex: Female

DRUGS (9)
  1. ARAVA [Suspect]
     Indication: RHEUMATOID ARTHRITIS
     Dosage: 20 MG QD PO
     Route: 048
  2. LOVASTATIN [Concomitant]
  3. LISINOPRIL [Concomitant]
  4. LOPRESSOR [Concomitant]
  5. PROTONIX [Concomitant]
  6. TRAMADOLOL [Concomitant]
  7. ZHIBAI (HORMONE REPLACEMENT) [Concomitant]
  8. ISOCORT (CORTISOL) [Concomitant]
  9. FLAX SEED OIL [Concomitant]

REACTIONS (15)
  - ABDOMINAL DISTENSION [None]
  - ALANINE AMINOTRANSFERASE INCREASED [None]
  - ANTINUCLEAR ANTIBODY POSITIVE [None]
  - ASPARTATE AMINOTRANSFERASE INCREASED [None]
  - AUTOIMMUNE HEPATITIS [None]
  - BLOOD BILIRUBIN INCREASED [None]
  - CHROMATURIA [None]
  - HEPATIC TRAUMA [None]
  - HEPATOMEGALY [None]
  - INTERNATIONAL NORMALISED RATIO INCREASED [None]
  - JAUNDICE [None]
  - LIVER DISORDER [None]
  - LIVER TRANSPLANT [None]
  - NAUSEA [None]
  - SMALL INTESTINAL OBSTRUCTION [None]
